FAERS Safety Report 14712750 (Version 3)
Quarter: 2018Q2

REPORT INFORMATION
  Report Type: Report from Study
  Country: CN (occurrence: CN)
  Receive Date: 20180404
  Receipt Date: 20180501
  Transmission Date: 20180711
  Serious: Yes (Hospitalization)
  Sender: FDA-Public Use
  Company Number: CN-ROCHE-2095785

PATIENT
  Age: 54 Year
  Sex: Female
  Weight: 43 kg

DRUGS (12)
  1. BEVACIZUMAB. [Suspect]
     Active Substance: BEVACIZUMAB
     Indication: OVARIAN CANCER
     Dosage: DATE OF MOST RECENT DOSE 690 MG OF BEVACIZUMAB PRIOR TO SAE ONSET ON 1 MAR 2018
     Route: 042
     Dates: start: 20180301
  2. CAFFEIC ACID [Concomitant]
     Active Substance: CAFFEIC ACID
     Route: 065
     Dates: start: 20180302, end: 20180302
  3. DEXAMETHASONE SODIUM PHOSPHATE. [Concomitant]
     Active Substance: DEXAMETHASONE SODIUM PHOSPHATE
     Route: 065
     Dates: start: 20180301, end: 20180301
  4. DIPHENHYDRAMINE HYDROCHLORIDE. [Concomitant]
     Active Substance: DIPHENHYDRAMINE HYDROCHLORIDE
     Route: 065
     Dates: start: 20180301, end: 20180301
  5. PACLITAXEL. [Suspect]
     Active Substance: PACLITAXEL
     Indication: OVARIAN CANCER
     Dosage: DATE OF MOST RECENT DOSE OF PACLITAXEL 240 MG PRIOR TO SAE ONSET 1 MAR 2018
     Route: 042
     Dates: start: 20180207
  6. DIYUSHENGBAI [Concomitant]
  7. BLINDED ATEZOLIZUMAB [Suspect]
     Active Substance: ATEZOLIZUMAB
     Indication: OVARIAN CANCER
     Dosage: DATE OF MOST RECENT DOSE OF ATEZOLIZUMAB/PLACEBO PRIOR TO SAE ONSET 1 MAR 2018
     Route: 042
     Dates: start: 20180207
  8. CAFFEIC ACID [Concomitant]
     Active Substance: CAFFEIC ACID
     Route: 065
     Dates: start: 20180207, end: 20180304
  9. COENZYME Q10 [Concomitant]
     Active Substance: UBIDECARENONE
     Dosage: COENZYME Q10 SODIUM CHLORIDE INJECTION
     Route: 065
     Dates: start: 20180228, end: 20180228
  10. CARBOPLATIN. [Suspect]
     Active Substance: CARBOPLATIN
     Indication: OVARIAN CANCER
     Route: 042
     Dates: start: 20180207
  11. MUCOPOLYSACCHARIDE POLYSULPHATE [Concomitant]
     Route: 065
     Dates: start: 20180228
  12. HEPARIN SODIUM. [Concomitant]
     Active Substance: HEPARIN SODIUM
     Route: 065
     Dates: start: 20180302, end: 20180302

REACTIONS (1)
  - Intestinal obstruction [Recovering/Resolving]

NARRATIVE: CASE EVENT DATE: 20180317
